FAERS Safety Report 8846268 (Version 2)
Quarter: 2012Q4

REPORT INFORMATION
  Report Type: 
  Country: BR (occurrence: BR)
  Receive Date: 20121018
  Receipt Date: 20121030
  Transmission Date: 20130627
  Serious: Yes (Death, Life-Threatening, Other)
  Sender: FDA-Public Use
  Company Number: BR-AMGEN-BRASP2012065725

PATIENT
  Age: 62 Year
  Sex: Male
  Weight: 56 kg

DRUGS (8)
  1. ENBREL [Suspect]
     Indication: PSORIATIC ARTHROPATHY
     Dosage: 50 mg, once weekly
     Route: 058
     Dates: start: 201103, end: 201202
  2. ENALAPRIL [Concomitant]
     Dosage: UNK
  3. FOLIC ACID [Concomitant]
     Dosage: UNK
  4. METHOTREXATE [Concomitant]
     Dosage: UNK
  5. AMYTRIL [Concomitant]
     Dosage: UNK
  6. TYLENOL /00020001/ [Concomitant]
     Dosage: UNK
  7. HYDREA [Concomitant]
     Dosage: UNK
  8. TYLENOL /00020001/ [Concomitant]
     Dosage: UNK

REACTIONS (7)
  - American trypanosomiasis [Fatal]
  - Cardiac arrest [Unknown]
  - Coma [Unknown]
  - Blood pressure increased [Unknown]
  - Anxiety [Unknown]
  - Depression [Unknown]
  - Pneumonia [Unknown]
